FAERS Safety Report 4322023-3 (Version None)
Quarter: 2004Q1

REPORT INFORMATION
  Report Type: 
  Country: None (occurrence: None)
  Receive Date: 20040319
  Receipt Date: 20040108
  Transmission Date: 20041129
  Serious: No
  Sender: FDA-Public Use
  Company Number: 200313005

PATIENT
  Age: 62 Year
  Sex: Female
  Weight: 87.5442 kg

DRUGS (4)
  1. LUMIGAN [Suspect]
     Indication: GLAUCOMA
     Dosage: 1 DROP QHS EYE
     Dates: start: 20031101, end: 20031024
  2. THYROID TAB [Concomitant]
  3. DYAZIDE [Concomitant]
  4. COSOPT [Concomitant]

REACTIONS (6)
  - ABNORMAL BEHAVIOUR [None]
  - ARTHRALGIA [None]
  - EPISTAXIS [None]
  - HEARING IMPAIRED [None]
  - NASAL CONGESTION [None]
  - SKIN HYPERPIGMENTATION [None]
